FAERS Safety Report 6606936-5 (Version None)
Quarter: 2010Q1

REPORT INFORMATION
  Report Type: 
  Country: None (occurrence: None)
  Receive Date: 20100226
  Receipt Date: 20090225
  Transmission Date: 20100710
  Serious: Yes (Hospitalization)
  Sender: FDA-Public Use
  Company Number: US-ALLERGAN-0902483US

PATIENT
  Age: 70 Year
  Sex: Male

DRUGS (9)
  1. BOTOX [Suspect]
     Indication: MUSCLE SPASTICITY
     Dosage: 700 UNITS, SINGLE
     Route: 030
     Dates: start: 20090211, end: 20090211
  2. KEPPRA [Concomitant]
     Dosage: 500 MG, BID
  3. DILANTIN [Concomitant]
     Dosage: 200 MG, QD
  4. CELEXA [Concomitant]
     Dosage: 20 MG, QD
  5. PROVIGIL [Concomitant]
     Dosage: 100 MG, QD
  6. PLAVIX [Concomitant]
     Dosage: 75 MG, QD
  7. ASPIRIN [Concomitant]
     Dosage: 81 MG, QD
  8. LEVOTHYROX [Concomitant]
     Dosage: 75 UG, QD
  9. COREG [Concomitant]
     Dosage: 65 MG, QD

REACTIONS (1)
  - CELLULITIS [None]
